FAERS Safety Report 24419372 (Version 2)
Quarter: 2024Q4

REPORT INFORMATION
  Report Type: Report from Study
  Country: US (occurrence: US)
  Receive Date: 20241009
  Receipt Date: 20241018
  Transmission Date: 20250114
  Serious: No
  Sender: ROCHE
  Company Number: US-ROCHE-3457065

PATIENT
  Age: 29 Year
  Sex: Male

DRUGS (1)
  1. ACTIVASE [Suspect]
     Active Substance: ALTEPLASE
     Indication: Cardiac failure congestive
     Dosage: DATE OF SERVICE: 14/DEC/2022, 15/DEC/2022, 16/DEC/2022, 23/DEC/2022, 24/DEC/2022, 25/DEC/2022, 26/DE
     Route: 065

REACTIONS (2)
  - Off label use [Unknown]
  - No adverse event [Unknown]
